FAERS Safety Report 4495525-7 (Version None)
Quarter: 2004Q4

REPORT INFORMATION
  Report Type: 
  Country: None (occurrence: None)
  Receive Date: 20041104
  Receipt Date: 20041019
  Transmission Date: 20050328
  Serious: Yes (Hospitalization)
  Sender: FDA-Public Use
  Company Number: 2004231055US

PATIENT
  Sex: Male

DRUGS (1)
  1. XANAX XR [Suspect]

REACTIONS (3)
  - INTENTIONAL OVERDOSE [None]
  - POISONING [None]
  - SEDATION [None]
